FAERS Safety Report 7921006-1 (Version None)
Quarter: 2011Q4

REPORT INFORMATION
  Report Type: 
  Country: None (occurrence: None)
  Receive Date: 20111117
  Receipt Date: 20111104
  Transmission Date: 20120403
  Serious: Yes (Hospitalization, Other)
  Sender: FDA-Public Use
  Company Number: US-BAYER-201016529NA

PATIENT
  Age: 39 Year
  Sex: Female
  Weight: 79.365 kg

DRUGS (15)
  1. ZITHROMAX [Concomitant]
  2. YAZ [Suspect]
     Indication: PREMENSTRUAL SYNDROME
  3. DARVOCET [Concomitant]
  4. YAZ [Suspect]
     Indication: MENSTRUATION IRREGULAR
     Dosage: UNK
     Route: 048
     Dates: start: 20070816, end: 20080303
  5. VICODIN [Concomitant]
  6. SONATA [Concomitant]
  7. YAZ [Suspect]
     Indication: OVARIAN CYST
  8. WELLBUTRIN XL [Concomitant]
  9. ELETRIPTAN HYDROBROMIDE [Concomitant]
  10. NSAID'S [Concomitant]
  11. ZANAFLEX [Concomitant]
  12. NADOLOL [Concomitant]
  13. FROVA [Concomitant]
  14. SEROQUEL [Concomitant]
  15. AMBIEN [Concomitant]

REACTIONS (4)
  - PORTAL VEIN THROMBOSIS [None]
  - MESENTERIC VEIN THROMBOSIS [None]
  - SPLENIC VEIN THROMBOSIS [None]
  - CHEST PAIN [None]
